FAERS Safety Report 23091772 (Version 1)
Quarter: 2023Q4

REPORT INFORMATION
  Report Type: Report from Study
  Country: US (occurrence: US)
  Receive Date: 20231020
  Receipt Date: 20231020
  Transmission Date: 20240110
  Serious: Yes (Other)
  Sender: FDA-Public Use
  Company Number: US-ABBVIE-5457126

PATIENT

DRUGS (1)
  1. HUMIRA [Suspect]
     Active Substance: ADALIMUMAB
     Indication: Product used for unknown indication
     Route: 058

REACTIONS (7)
  - Temporomandibular joint syndrome [Not Recovered/Not Resolved]
  - Joint dislocation [Unknown]
  - Tooth disorder [Unknown]
  - Scoliosis [Unknown]
  - Rheumatoid arthritis [Unknown]
  - Trismus [Unknown]
  - Surgical failure [Unknown]
